FAERS Safety Report 10716983 (Version 1)
Quarter: 2015Q1

REPORT INFORMATION
  Report Type: Spontaneous
  Country: US (occurrence: US)
  Receive Date: 20150116
  Receipt Date: 20150116
  Transmission Date: 20150721
  Serious: No
  Sender: FDA-Public Use
  Company Number: US-ENDO PHARMACEUTICALS INC.-HCDA20140068

PATIENT
  Sex: Male

DRUGS (1)
  1. HYDROCODONE BITARTRATE / ACETAMINOPHEN 5MG/500MG [Suspect]
     Active Substance: ACETAMINOPHEN\HYDROCODONE BITARTRATE
     Indication: PAIN
     Dosage: 5/500MG
     Route: 048

REACTIONS (1)
  - Hepatic enzyme increased [Unknown]
